FAERS Safety Report 20654976 (Version 1)
Quarter: 2022Q1

REPORT INFORMATION
  Report Type: Other
  Country: None (occurrence: US)
  Receive Date: 20220330
  Receipt Date: 20220330
  Transmission Date: 20220423
  Serious: Yes (Hospitalization, Other)
  Sender: FDA-Public Use
  Company Number: US-Stason Pharmaceuticals, Inc.-2127245

PATIENT
  Age: 88 Year
  Sex: Female

DRUGS (5)
  1. ANASTROZOLE [Suspect]
     Active Substance: ANASTROZOLE
     Indication: Breast cancer
     Route: 065
  2. DONEPEZIL [Suspect]
     Active Substance: DONEPEZIL
     Route: 065
  3. LOSARTAN [Suspect]
     Active Substance: LOSARTAN
     Route: 065
  4. MEMANTINE [Suspect]
     Active Substance: MEMANTINE
     Route: 065
  5. MIRTAZAPINE [Suspect]
     Active Substance: MIRTAZAPINE
     Route: 065

REACTIONS (2)
  - Sialoadenitis [Recovering/Resolving]
  - Cellulitis [Recovering/Resolving]
